FAERS Safety Report 7134055-0 (Version None)
Quarter: 2010Q4

REPORT INFORMATION
  Report Type: 
  Country: None (occurrence: None)
  Receive Date: 20101203
  Receipt Date: 20101124
  Transmission Date: 20110411
  Serious: Yes (Other)
  Sender: FDA-Public Use
  Company Number: US-JNJFOC-20101108203

PATIENT
  Sex: Male
  Weight: 113.4 kg

DRUGS (3)
  1. FENTANYL-100 [Suspect]
     Indication: FIBROMYALGIA
     Route: 062
  2. FENTANYL-100 [Suspect]
     Indication: FIBROMYALGIA
     Route: 062
  3. FENTANYL-100 [Suspect]
     Route: 062

REACTIONS (5)
  - APPLICATION SITE BLEEDING [None]
  - APPLICATION SITE RASH [None]
  - APPLICATION SITE URTICARIA [None]
  - DERMATITIS CONTACT [None]
  - RHEUMATOID ARTHRITIS [None]
